FAERS Safety Report 6030285-X (Version None)
Quarter: 2009Q1

REPORT INFORMATION
  Report Type: 
  Country: None (occurrence: None)
  Receive Date: 20090105
  Receipt Date: 20090105
  Transmission Date: 20090719
  Serious: Yes (Disabling, Other)
  Sender: FDA-Public Use
  Company Number: None

PATIENT
  Age: 56 Year
  Sex: Female
  Weight: 72.5755 kg

DRUGS (3)
  1. FOSAMAX [Suspect]
     Indication: OSTEOPOROSIS
     Dosage: 1 WEEK PO  OFF AND ON FOR SIX YEARS
     Route: 048
     Dates: start: 20020601, end: 20070810
  2. BONIVA [Suspect]
     Dosage: 1 MONTH PO
     Route: 048
     Dates: start: 20080401, end: 20081201
  3. LIPITOR [Concomitant]

REACTIONS (16)
  - ANXIETY [None]
  - DENTAL CARIES [None]
  - DISCOMFORT [None]
  - DIZZINESS [None]
  - ENDODONTIC PROCEDURE [None]
  - FEAR [None]
  - GASTROOESOPHAGEAL REFLUX DISEASE [None]
  - IRRITABLE BOWEL SYNDROME [None]
  - MEMORY IMPAIRMENT [None]
  - MOBILITY DECREASED [None]
  - OSTEOPOROSIS [None]
  - SKIN ATROPHY [None]
  - SKIN DISORDER [None]
  - TOOTH FRACTURE [None]
  - TOOTHACHE [None]
  - VERTIGO [None]
